FAERS Safety Report 25527690 (Version 1)
Quarter: 2025Q3

REPORT INFORMATION
  Report Type: Spontaneous
  Country: US (occurrence: US)
  Receive Date: 20250708
  Receipt Date: 20250708
  Transmission Date: 20251020
  Serious: No
  Sender: ABBVIE
  Company Number: US-ABBVIE-6353062

PATIENT
  Sex: Female

DRUGS (2)
  1. BOTOX COSMETIC [Suspect]
     Active Substance: ONABOTULINUMTOXINA
     Indication: Facial cosmetic procedure
     Route: 065
  2. BOTOX COSMETIC [Suspect]
     Active Substance: ONABOTULINUMTOXINA
     Indication: Facial cosmetic procedure
     Route: 065
     Dates: start: 2025, end: 2025

REACTIONS (5)
  - Lip disorder [Recovering/Resolving]
  - Drug hypersensitivity [Recovering/Resolving]
  - Injection site pain [Recovering/Resolving]
  - Hypoaesthesia [Recovering/Resolving]
  - Speech disorder [Recovering/Resolving]

NARRATIVE: CASE EVENT DATE: 20250101
